FAERS Safety Report 12608579 (Version 3)
Quarter: 2017Q1

REPORT INFORMATION
  Report Type: Report from Study
  Country: JP (occurrence: JP)
  Receive Date: 20160729
  Receipt Date: 20170215
  Transmission Date: 20170428
  Serious: Yes (Life-Threatening, Hospitalization)
  Sender: FDA-Public Use
  Company Number: JP-CELGENEUS-JPN-2015036193

PATIENT
  Age: 82 Year
  Sex: Male
  Weight: 63 kg

DRUGS (79)
  1. VIDAZA [Suspect]
     Active Substance: AZACITIDINE
     Indication: MYELODYSPLASTIC SYNDROME
     Dosage: 48 MILLIGRAM/SQ. METER
     Route: 058
     Dates: start: 20120605, end: 20120608
  2. VIDAZA [Suspect]
     Active Substance: AZACITIDINE
     Dosage: 48 MILLIGRAM/SQ. METER
     Route: 041
     Dates: start: 20121002, end: 20121008
  3. VIDAZA [Suspect]
     Active Substance: AZACITIDINE
     Dosage: 80 MILLIGRAM
     Route: 041
     Dates: start: 20130910, end: 20130916
  4. OLMETEC [Concomitant]
     Active Substance: OLMESARTAN MEDOXOMIL
     Indication: PRODUCT USED FOR UNKNOWN INDICATION
     Route: 065
     Dates: start: 20120604
  5. NASEA [Concomitant]
     Active Substance: RAMOSETRON HYDROCHLORIDE
     Route: 065
     Dates: start: 20130806, end: 20130812
  6. NASEA [Concomitant]
     Active Substance: RAMOSETRON HYDROCHLORIDE
     Route: 065
     Dates: start: 20130910, end: 20130916
  7. NASEA [Concomitant]
     Active Substance: RAMOSETRON HYDROCHLORIDE
     Route: 065
     Dates: start: 20131008, end: 20131014
  8. LEUPLIN [Concomitant]
     Active Substance: LEUPROLIDE ACETATE
     Indication: PRODUCT USED FOR UNKNOWN INDICATION
     Route: 065
     Dates: start: 20120628, end: 20120628
  9. LEUPLIN [Concomitant]
     Active Substance: LEUPROLIDE ACETATE
     Route: 065
     Dates: start: 20130725, end: 20130725
  10. CLARITIN [Concomitant]
     Active Substance: LORATADINE
     Indication: PRODUCT USED FOR UNKNOWN INDICATION
     Route: 065
     Dates: start: 20120918, end: 20121005
  11. VIDAZA [Suspect]
     Active Substance: AZACITIDINE
     Dosage: 48 MILLIGRAM/SQ. METER
     Route: 041
     Dates: start: 20120731, end: 20120806
  12. VIDAZA [Suspect]
     Active Substance: AZACITIDINE
     Dosage: 80 MILLIGRAM
     Route: 041
     Dates: start: 20130806, end: 20130812
  13. RED BLOOD CELLS [Concomitant]
     Active Substance: HUMAN RED BLOOD CELL
     Indication: TRANSFUSION
     Route: 041
  14. NASEA [Concomitant]
     Active Substance: RAMOSETRON HYDROCHLORIDE
     Route: 065
     Dates: start: 201210, end: 20121105
  15. NASEA [Concomitant]
     Active Substance: RAMOSETRON HYDROCHLORIDE
     Route: 065
     Dates: start: 20131217, end: 20131223
  16. MUCODYNE [Concomitant]
     Active Substance: CARBOCYSTEINE
     Indication: PRODUCT USED FOR UNKNOWN INDICATION
     Route: 065
     Dates: start: 20120618, end: 201405
  17. LEUPLIN [Concomitant]
     Active Substance: LEUPROLIDE ACETATE
     Route: 065
     Dates: start: 20130502, end: 20130502
  18. PRIMPERAN [Concomitant]
     Active Substance: METOCLOPRAMIDE HYDROCHLORIDE
     Route: 065
     Dates: start: 20130326, end: 20130326
  19. POSTERISAN [Concomitant]
     Active Substance: LIDOCAINE
     Indication: PRODUCT USED FOR UNKNOWN INDICATION
     Route: 065
     Dates: start: 20121105, end: 20130228
  20. ALLEGRA [Concomitant]
     Active Substance: FEXOFENADINE HYDROCHLORIDE
     Route: 065
     Dates: start: 20130326, end: 20130326
  21. TSUMURA SHAKUYAKUKANZOTO EXTRACT [Concomitant]
     Indication: PRODUCT USED FOR UNKNOWN INDICATION
     Route: 065
     Dates: start: 20130626, end: 20130626
  22. VIDAZA [Suspect]
     Active Substance: AZACITIDINE
     Dosage: 48 MILLIGRAM/SQ. METER
     Route: 041
     Dates: start: 20121030, end: 20121105
  23. VIDAZA [Suspect]
     Active Substance: AZACITIDINE
     Dosage: 80 MILLIGRAM
     Route: 041
     Dates: start: 20131008, end: 20131014
  24. LECICARBON [Concomitant]
     Active Substance: SODIUM BICARBONATE\SODIUM PHOSPHATE, MONOBASIC
     Indication: PRODUCT USED FOR UNKNOWN INDICATION
     Route: 065
     Dates: start: 20120613, end: 20120613
  25. LEUPLIN [Concomitant]
     Active Substance: LEUPROLIDE ACETATE
     Route: 065
     Dates: start: 20120810, end: 20120810
  26. LEUPLIN [Concomitant]
     Active Substance: LEUPROLIDE ACETATE
     Route: 065
     Dates: start: 20131017, end: 20131017
  27. FAMOSTAGINE [Concomitant]
     Active Substance: FAMOTIDINE
     Indication: PRODUCT USED FOR UNKNOWN INDICATION
     Route: 065
     Dates: start: 20130616, end: 20130618
  28. VIDAZA [Suspect]
     Active Substance: AZACITIDINE
     Dosage: 80 MILLIGRAM
     Route: 041
     Dates: start: 20130709, end: 20130715
  29. NASEA [Concomitant]
     Active Substance: RAMOSETRON HYDROCHLORIDE
     Route: 065
     Dates: start: 20120904, end: 20120910
  30. NASEA [Concomitant]
     Active Substance: RAMOSETRON HYDROCHLORIDE
     Route: 065
     Dates: start: 20130108, end: 20130114
  31. NASEA [Concomitant]
     Active Substance: RAMOSETRON HYDROCHLORIDE
     Route: 065
     Dates: start: 20130215, end: 20130221
  32. NASEA [Concomitant]
     Active Substance: RAMOSETRON HYDROCHLORIDE
     Route: 065
     Dates: start: 20130709, end: 20130715
  33. CALONAL [Concomitant]
     Active Substance: ACETAMINOPHEN
     Route: 065
     Dates: start: 20131217, end: 20131218
  34. LEUPLIN [Concomitant]
     Active Substance: LEUPROLIDE ACETATE
     Route: 065
     Dates: start: 20130201, end: 20130201
  35. LEUPLIN [Concomitant]
     Active Substance: LEUPROLIDE ACETATE
     Route: 065
     Dates: start: 20140109, end: 20140109
  36. CLARITIN [Concomitant]
     Active Substance: LORATADINE
     Route: 065
     Dates: start: 20130326, end: 20130326
  37. ALLEGRA [Concomitant]
     Active Substance: FEXOFENADINE HYDROCHLORIDE
     Indication: PRODUCT USED FOR UNKNOWN INDICATION
     Route: 065
     Dates: start: 20121006, end: 20121029
  38. VIDAZA [Suspect]
     Active Substance: AZACITIDINE
     Dosage: 48 MILLIGRAM/SQ. METER
     Route: 041
     Dates: start: 20120609, end: 20120611
  39. VIDAZA [Suspect]
     Active Substance: AZACITIDINE
     Dosage: 80 MILLIGRAM
     Route: 041
     Dates: start: 20130611, end: 20160617
  40. NASEA [Concomitant]
     Active Substance: RAMOSETRON HYDROCHLORIDE
     Route: 065
     Dates: start: 20130611, end: 20130617
  41. SENNOSIDE [Concomitant]
     Active Substance: SENNOSIDES
     Indication: PRODUCT USED FOR UNKNOWN INDICATION
     Route: 065
     Dates: start: 20120612, end: 20120613
  42. LEUPLIN [Concomitant]
     Active Substance: LEUPROLIDE ACETATE
     Route: 065
     Dates: start: 20121108, end: 20121108
  43. CEFEPIME [Concomitant]
     Active Substance: CEFEPIME HYDROCHLORIDE
     Route: 065
     Dates: start: 20131217, end: 20131224
  44. NAUZELIN [Concomitant]
     Active Substance: DOMPERIDONE
     Route: 065
     Dates: start: 20130925, end: 20130925
  45. MOSAPRIDE CITRATE HYDRATE [Concomitant]
     Active Substance: MOSAPRIDE CITRATE DIHYDRATE
     Indication: PRODUCT USED FOR UNKNOWN INDICATION
     Route: 065
     Dates: start: 20130925, end: 20130925
  46. NASEA [Concomitant]
     Active Substance: RAMOSETRON HYDROCHLORIDE
     Route: 065
     Dates: start: 20120702, end: 20120708
  47. NASEA [Concomitant]
     Active Substance: RAMOSETRON HYDROCHLORIDE
     Route: 065
     Dates: start: 20121204, end: 20121210
  48. NASEA [Concomitant]
     Active Substance: RAMOSETRON HYDROCHLORIDE
     Route: 065
     Dates: start: 20130327, end: 20130401
  49. NASEA [Concomitant]
     Active Substance: RAMOSETRON HYDROCHLORIDE
     Route: 065
     Dates: start: 20131112, end: 20131118
  50. MAGLAX [Concomitant]
     Active Substance: MAGNESIUM OXIDE
     Route: 065
     Dates: start: 20120705, end: 20120812
  51. MAGLAX [Concomitant]
     Active Substance: MAGNESIUM OXIDE
     Route: 065
     Dates: start: 20120903, end: 20130108
  52. CALONAL [Concomitant]
     Active Substance: ACETAMINOPHEN
     Indication: PRODUCT USED FOR UNKNOWN INDICATION
     Route: 065
     Dates: start: 20120613, end: 20120613
  53. NAIXAN [Concomitant]
     Active Substance: NAPROXEN SODIUM
     Indication: PRODUCT USED FOR UNKNOWN INDICATION
     Route: 065
     Dates: start: 20140107, end: 20140114
  54. NIFLEC [Concomitant]
     Active Substance: BICARBONATE ION\POLYETHYLENE GLYCOLS\POTASSIUM CATION\SODIUM CHLORIDE\SODIUM SULFATE ANHYDROUS
     Indication: PRODUCT USED FOR UNKNOWN INDICATION
     Route: 065
     Dates: start: 20130925, end: 20130925
  55. VIDAZA [Suspect]
     Active Substance: AZACITIDINE
     Dosage: 48 MILLIGRAM/SQ. METER
     Route: 041
     Dates: start: 20120702, end: 20120708
  56. VIDAZA [Suspect]
     Active Substance: AZACITIDINE
     Dosage: 48 MILLIGRAM/SQ. METER
     Route: 041
     Dates: start: 20120904, end: 20120910
  57. VIDAZA [Suspect]
     Active Substance: AZACITIDINE
     Dosage: 80 MILLIGRAM
     Route: 041
     Dates: start: 20130108, end: 20130114
  58. VIDAZA [Suspect]
     Active Substance: AZACITIDINE
     Dosage: 80 MILLIGRAM
     Route: 041
     Dates: start: 20130215, end: 20130221
  59. VIDAZA [Suspect]
     Active Substance: AZACITIDINE
     Dosage: 80 MILLIGRAM
     Route: 041
     Dates: start: 20130326, end: 20130401
  60. VIDAZA [Suspect]
     Active Substance: AZACITIDINE
     Dosage: 80 MILLIGRAM
     Route: 041
     Dates: start: 20130508, end: 20130514
  61. VIDAZA [Suspect]
     Active Substance: AZACITIDINE
     Dosage: 80 MILLIGRAM
     Route: 041
     Dates: start: 20131112, end: 20131118
  62. VIDAZA [Suspect]
     Active Substance: AZACITIDINE
     Dosage: 80 MILLIGRAM
     Route: 041
     Dates: start: 20131217, end: 20131223
  63. NASEA [Concomitant]
     Active Substance: RAMOSETRON HYDROCHLORIDE
     Route: 065
     Dates: start: 20130508, end: 20130514
  64. PRIMPERAN [Concomitant]
     Active Substance: METOCLOPRAMIDE HYDROCHLORIDE
     Indication: PRODUCT USED FOR UNKNOWN INDICATION
     Route: 065
     Dates: start: 20130606, end: 20130626
  65. VALTREX [Concomitant]
     Active Substance: VALACYCLOVIR HYDROCHLORIDE
     Indication: PRODUCT USED FOR UNKNOWN INDICATION
     Route: 065
     Dates: start: 20140117, end: 20140122
  66. LACTOMIN [Concomitant]
     Active Substance: LACTOBACILLUS ACIDOPHILUS
     Indication: PRODUCT USED FOR UNKNOWN INDICATION
     Route: 065
     Dates: start: 20130117
  67. VIDAZA [Suspect]
     Active Substance: AZACITIDINE
     Dosage: 80 MILLIGRAM
     Route: 041
     Dates: start: 20121204, end: 20121210
  68. PLATELETS [Concomitant]
     Active Substance: HUMAN PLATELET, ALLOGENIC
     Indication: TRANSFUSION
     Route: 041
  69. NASEA [Concomitant]
     Active Substance: RAMOSETRON HYDROCHLORIDE
     Indication: PRODUCT USED FOR UNKNOWN INDICATION
     Route: 065
     Dates: start: 20120605, end: 20120611
  70. NASEA [Concomitant]
     Active Substance: RAMOSETRON HYDROCHLORIDE
     Route: 065
     Dates: start: 20120731, end: 20120806
  71. NASEA [Concomitant]
     Active Substance: RAMOSETRON HYDROCHLORIDE
     Route: 065
     Dates: start: 20121002, end: 20121008
  72. MAGLAX [Concomitant]
     Active Substance: MAGNESIUM OXIDE
     Indication: PRODUCT USED FOR UNKNOWN INDICATION
     Route: 065
     Dates: start: 20120610, end: 20120613
  73. MAGLAX [Concomitant]
     Active Substance: MAGNESIUM OXIDE
     Route: 065
     Dates: start: 20130114
  74. CALONAL [Concomitant]
     Active Substance: ACETAMINOPHEN
     Route: 065
     Dates: start: 20131223, end: 20131224
  75. CEFEPIME [Concomitant]
     Active Substance: CEFEPIME HYDROCHLORIDE
     Indication: PRODUCT USED FOR UNKNOWN INDICATION
     Route: 065
     Dates: start: 20120613, end: 20120618
  76. MAGMITT [Concomitant]
     Active Substance: MAGNESIUM OXIDE
     Indication: PRODUCT USED FOR UNKNOWN INDICATION
     Route: 048
     Dates: start: 20130107, end: 20130115
  77. NAUZELIN [Concomitant]
     Active Substance: DOMPERIDONE
     Indication: PRODUCT USED FOR UNKNOWN INDICATION
     Route: 065
     Dates: start: 20130616, end: 20130618
  78. POSTERISAN [Concomitant]
     Active Substance: LIDOCAINE
     Route: 065
     Dates: start: 20130326, end: 20130326
  79. SODIUM PICOSULFATE HYDRATE [Concomitant]
     Indication: PRODUCT USED FOR UNKNOWN INDICATION
     Route: 065
     Dates: start: 20130924, end: 20130924

REACTIONS (11)
  - Urinary tract infection [Recovered/Resolved]
  - Constipation [Not Recovered/Not Resolved]
  - Pyrexia [Recovered/Resolved]
  - Constipation [Recovering/Resolving]
  - Muscle spasms [Recovered/Resolved]
  - Platelet count decreased [Recovering/Resolving]
  - Injection site reaction [Recovered/Resolved]
  - Oral herpes [Recovered/Resolved]
  - Constipation [Recovered/Resolved]
  - Gastritis [Recovered/Resolved]
  - Oropharyngeal discomfort [Not Recovered/Not Resolved]

NARRATIVE: CASE EVENT DATE: 20120608
